FAERS Safety Report 23426817 (Version 2)
Quarter: 2024Q1

REPORT INFORMATION
  Report Type: Report from Study
  Country: GB (occurrence: GB)
  Receive Date: 20240122
  Receipt Date: 20240201
  Transmission Date: 20240409
  Serious: Yes (Hospitalization, Other)
  Sender: FDA-Public Use
  Company Number: GB-SANDOZ-SDZ2023GB059337

PATIENT
  Sex: Female

DRUGS (1)
  1. ERELZI [Suspect]
     Active Substance: ETANERCEPT-SZZS
     Indication: Ankylosing spondylitis
     Dosage: 50 MG, QW
     Route: 058
     Dates: start: 20240110

REACTIONS (10)
  - Mouth haemorrhage [Unknown]
  - Epistaxis [Unknown]
  - Postmenopausal haemorrhage [Unknown]
  - Influenza [Unknown]
  - Swelling face [Unknown]
  - Neck pain [Unknown]
  - Arthralgia [Unknown]
  - Injection site pain [Unknown]
  - Alopecia [Unknown]
  - Drug ineffective [Unknown]
